FAERS Safety Report 4337560-5 (Version None)
Quarter: 2004Q2

REPORT INFORMATION
  Report Type: 
  Country: None (occurrence: None)
  Receive Date: 20040412
  Receipt Date: 20040412
  Transmission Date: 20050107
  Serious: Yes (Hospitalization)
  Sender: FDA-Public Use
  Company Number: None

PATIENT
  Sex: Male
  Weight: 131.5431 kg

DRUGS (8)
  1. LISINOPRIL [Suspect]
     Indication: HYPERTENSION
     Dosage: 40MG DAILY ORAL
     Route: 048
     Dates: start: 20030901, end: 20040401
  2. SULFAMETHOXAZOLE + TRIMETHOPRIM [Suspect]
     Indication: URINARY TRACT INFECTION
     Dosage: 160 / 800MG TWICE DAILY ORAL
     Route: 048
     Dates: start: 20040325, end: 20040401
  3. METFORMIN [Concomitant]
  4. GLIPIZIDE [Concomitant]
  5. TERAZOSIN HCL [Concomitant]
  6. SIMVASTATIN [Concomitant]
  7. NIFEDIPINE [Concomitant]
  8. ATENOLOL [Concomitant]

REACTIONS (2)
  - ANGIONEUROTIC OEDEMA [None]
  - HYPERKALAEMIA [None]
